FAERS Safety Report 21809954 (Version 2)
Quarter: 2025Q2

REPORT INFORMATION
  Report Type: Report from Study
  Country: RO (occurrence: RO)
  Receive Date: 20230103
  Receipt Date: 20250619
  Transmission Date: 20250717
  Serious: Yes (Other)
  Sender: AUROBINDO
  Company Number: RO-MYLANLABS-2022M1140039

PATIENT
  Age: 59 Year
  Sex: Female

DRUGS (4)
  1. RITONAVIR [Suspect]
     Active Substance: RITONAVIR
     Indication: Vascular resistance systemic
     Route: 065
     Dates: start: 2016
  2. OMBITASVIR\PARITAPREVIR\RITONAVIR [Concomitant]
     Active Substance: OMBITASVIR\PARITAPREVIR\RITONAVIR
     Indication: Product used for unknown indication
     Route: 065
     Dates: start: 2016
  3. DASABUVIR [Concomitant]
     Active Substance: DASABUVIR
     Indication: Product used for unknown indication
     Route: 065
     Dates: start: 2016
  4. RIBAVIRIN [Concomitant]
     Active Substance: RIBAVIRIN
     Indication: Product used for unknown indication
     Route: 065
     Dates: start: 2016

REACTIONS (1)
  - Hepatocellular carcinoma [Unknown]
